FAERS Safety Report 8795885 (Version 1)
Quarter: 2012Q4

REPORT INFORMATION
  Report Type: 
  Country: US (occurrence: US)
  Receive Date: 20120919
  Receipt Date: 20120919
  Transmission Date: 20130627
  Serious: No
  Sender: FDA-Public Use
  Company Number: US-ASTRAZENECA-2012SE70443

PATIENT
  Age: 68 Year
  Sex: Male
  Weight: 123.4 kg

DRUGS (21)
  1. SYMBICORT PMDI [Suspect]
     Indication: CHRONIC OBSTRUCTIVE PULMONARY DISEASE
     Dosage: 160MCG, 2 PUFF, BID
     Route: 055
  2. AMLODIPINE [Concomitant]
     Indication: HYPERTENSION
  3. CARBIDOPA [Concomitant]
     Indication: RESTLESS LEGS SYNDROME
  4. HYDROCHLOROTHIAZIDE [Concomitant]
     Indication: HYPERTENSION
  5. SENNOSIDES [Concomitant]
     Indication: LAXATIVE SUPPORTIVE CARE
  6. FLUOXETINE [Concomitant]
     Indication: POST-TRAUMATIC STRESS DISORDER
  7. NITROGLYCERIN [Concomitant]
     Indication: CARDIAC DISORDER
  8. TRAMADOL [Concomitant]
     Indication: BACK PAIN
  9. LORATADINE [Concomitant]
     Indication: SINUS DISORDER
  10. LISINOPRIL [Concomitant]
     Indication: HYPERTENSION
  11. TIZANIDINE [Concomitant]
     Indication: MUSCLE RELAXANT THERAPY
  12. ATENOLOL [Concomitant]
     Indication: HYPERTENSION
  13. DOCUSATE [Concomitant]
     Indication: LAXATIVE SUPPORTIVE CARE
  14. VALACYCLOVIR [Concomitant]
     Indication: HERPES ZOSTER
  15. TRAZODONE [Concomitant]
     Indication: SLEEP DISORDER
  16. TRAZODONE [Concomitant]
     Indication: POST-TRAUMATIC STRESS DISORDER
  17. FLUTICASONE [Concomitant]
     Indication: SINUS DISORDER
  18. BACLOFEN [Concomitant]
     Indication: MUSCLE RELAXANT THERAPY
  19. GABAPENTIN [Concomitant]
  20. SIMVASTATIN [Concomitant]
  21. IBUPROFEN [Concomitant]

REACTIONS (2)
  - Night blindness [Unknown]
  - Visual impairment [Unknown]
